FAERS Safety Report 14245842 (Version 2)
Quarter: 2017Q4

REPORT INFORMATION
  Report Type: Report from Study
  Country: None (occurrence: US)
  Receive Date: 20171204
  Receipt Date: 20171208
  Transmission Date: 20180321
  Serious: Yes (Hospitalization)
  Sender: FDA-Public Use
  Company Number: US-ABBVIE-17K-163-2175520-00

PATIENT
  Age: 77 Year
  Sex: Female
  Weight: 62.65 kg

DRUGS (17)
  1. HUMIRA [Suspect]
     Active Substance: ADALIMUMAB
     Indication: CROHN^S DISEASE
     Route: 058
     Dates: start: 20171007, end: 20171007
  2. KEPPRA [Concomitant]
     Active Substance: LEVETIRACETAM
     Indication: SEIZURE
  3. HUMIRA [Suspect]
     Active Substance: ADALIMUMAB
     Route: 058
     Dates: start: 20171104, end: 20171118
  4. TRADJENTA [Concomitant]
     Active Substance: LINAGLIPTIN
     Indication: TYPE 2 DIABETES MELLITUS
  5. BUDESONIDE. [Concomitant]
     Active Substance: BUDESONIDE
     Indication: CROHN^S DISEASE
  6. CLARITIN [Concomitant]
     Active Substance: LORATADINE
     Indication: HYPERSENSITIVITY
  7. ADVAIR HFA [Concomitant]
     Active Substance: FLUTICASONE PROPIONATE\SALMETEROL XINAFOATE
     Indication: CHRONIC OBSTRUCTIVE PULMONARY DISEASE
  8. CALCIUM [Concomitant]
     Active Substance: CALCIUM
     Indication: MINERAL SUPPLEMENTATION
  9. ATORVASTATIN [Concomitant]
     Active Substance: ATORVASTATIN
     Indication: BLOOD CHOLESTEROL INCREASED
  10. ASPIRIN. [Concomitant]
     Active Substance: ASPIRIN
     Indication: CARDIOVASCULAR EVENT PROPHYLAXIS
  11. HUMIRA [Suspect]
     Active Substance: ADALIMUMAB
     Route: 058
     Dates: start: 20171021, end: 20171021
  12. BISOPROLOL [Concomitant]
     Active Substance: BISOPROLOL
     Indication: HYPERTENSION
  13. VALSARTAN. [Concomitant]
     Active Substance: VALSARTAN
     Indication: HYPERTENSION
  14. LANSOPRAZOLE. [Concomitant]
     Active Substance: LANSOPRAZOLE
     Indication: CROHN^S DISEASE
  15. AMLODIPINE [Concomitant]
     Active Substance: AMLODIPINE BESYLATE
     Indication: HYPERTENSION
  16. MONTELUKAST [Concomitant]
     Active Substance: MONTELUKAST SODIUM
     Indication: ASTHMA
  17. ESTRIOL [Concomitant]
     Active Substance: ESTRIOL
     Indication: URINARY TRACT INFECTION

REACTIONS (6)
  - Fatigue [Recovering/Resolving]
  - Diabetes mellitus [Recovered/Resolved]
  - Asthma [Recovering/Resolving]
  - Dizziness [Recovered/Resolved]
  - Sleep apnoea syndrome [Not Recovered/Not Resolved]
  - Chronic obstructive pulmonary disease [Recovering/Resolving]

NARRATIVE: CASE EVENT DATE: 2017
